FAERS Safety Report 7720432-3 (Version None)
Quarter: 2011Q3

REPORT INFORMATION
  Report Type: 
  Country: None (occurrence: None)
  Receive Date: 20110831
  Receipt Date: 20110823
  Transmission Date: 20111222
  Serious: Yes (Life-Threatening, Hospitalization)
  Sender: FDA-Public Use
  Company Number: JP-SANOFI-AVENTIS-2011SA052327

PATIENT
  Age: 83 Year
  Sex: Male
  Weight: 55 kg

DRUGS (3)
  1. CLONAZEPAM [Concomitant]
     Route: 048
     Dates: start: 20090614, end: 20110601
  2. ALLEGRA [Suspect]
     Route: 048
     Dates: start: 20090614, end: 20110803
  3. LUVOX [Concomitant]
     Indication: DEPRESSION
     Route: 048
     Dates: start: 20090614, end: 20110801

REACTIONS (4)
  - URINARY INCONTINENCE [None]
  - FALL [None]
  - LOSS OF CONSCIOUSNESS [None]
  - NAUSEA [None]
